FAERS Safety Report 18035549 (Version 1)
Quarter: 2020Q3

REPORT INFORMATION
  Report Type: Spontaneous
  Country: US (occurrence: US)
  Receive Date: 20200717
  Receipt Date: 20200717
  Transmission Date: 20201103
  Serious: Yes (Other)
  Sender: FDA-Public Use
  Company Number: None

PATIENT
  Age: 5 Month
  Sex: Female
  Weight: 90 kg

DRUGS (1)
  1. SHARK ARMOR HAND SANITIZER [Suspect]
     Active Substance: ALCOHOL
     Indication: INFECTION PROPHYLAXIS
     Dosage: ?          QUANTITY:3 GALLONS;OTHER FREQUENCY:FEW TIMES DAY;?
     Route: 061
     Dates: start: 20200605, end: 20200701

REACTIONS (7)
  - Malaise [None]
  - Headache [None]
  - Product odour abnormal [None]
  - Nausea [None]
  - Abdominal pain upper [None]
  - Dizziness [None]
  - Fear of disease [None]

NARRATIVE: CASE EVENT DATE: 20200605
